FAERS Safety Report 4422715-1 (Version None)
Quarter: 2004Q3

REPORT INFORMATION
  Report Type: 
  Country: None (occurrence: None)
  Receive Date: 20040713
  Receipt Date: 20030729
  Transmission Date: 20050211
  Serious: No
  Sender: FDA-Public Use
  Company Number: PHEH2003US06681

PATIENT
  Age: 86 Year
  Sex: Female

DRUGS (6)
  1. ELIDEL [Suspect]
     Indication: HYPERKERATOSIS
     Dosage: TOPICAL
     Route: 061
     Dates: start: 20030722, end: 20030727
  2. ELIDEL [Suspect]
     Indication: HYPERKERATOSIS
     Dosage: TOPICAL
     Route: 061
     Dates: start: 20030729, end: 20030729
  3. LANOXIN [Concomitant]
  4. AVAPRO [Concomitant]
  5. TOPROL-XL [Concomitant]
  6. COUMADIN [Concomitant]

REACTIONS (2)
  - HEADACHE [None]
  - INSOMNIA [None]
